FAERS Safety Report 4345149-7 (Version None)
Quarter: 2004Q2

REPORT INFORMATION
  Report Type: 
  Country: None (occurrence: None)
  Receive Date: 20040421
  Receipt Date: 20040421
  Transmission Date: 20050107
  Serious: Yes (Life-Threatening)
  Sender: FDA-Public Use
  Company Number: None

PATIENT
  Sex: Male
  Weight: 103.4201 kg

DRUGS (12)
  1. SIMVASTATIN [Suspect]
     Indication: HYPERLIPIDAEMIA
     Dosage: 40MG QD ORAL
     Route: 048
     Dates: start: 20030504, end: 20040419
  2. GEMFIBROZIL [Suspect]
     Dosage: 600MG BID ORAL
     Route: 048
     Dates: start: 20030503, end: 20040419
  3. CLONIDINE HCL [Concomitant]
  4. FELODIPINE [Concomitant]
  5. FUROSEMIDE [Concomitant]
  6. GLYBURIDE [Concomitant]
  7. INSULIN [Concomitant]
  8. LISINOPIL [Concomitant]
  9. LOSARTAN [Concomitant]
  10. METOPROLOL [Concomitant]
  11. TERAZOSIN HCL [Concomitant]
  12. NITROGLYCERIN [Concomitant]

REACTIONS (1)
  - MYALGIA [None]
